FAERS Safety Report 24541127 (Version 1)
Quarter: 2024Q4

REPORT INFORMATION
  Report Type: Spontaneous
  Country: US (occurrence: None)
  Receive Date: 20241023
  Receipt Date: 20241023
  Transmission Date: 20250114
  Serious: No
  Sender: Public
  Company Number: None

PATIENT
  Age: 65 Year
  Sex: Male

DRUGS (2)
  1. OMNIPAQUE [Suspect]
     Active Substance: IOHEXOL
     Dosage: OTHER STRENGTH : 300MG IODINE/ML;?
  2. OMNIPAQUE [Suspect]
     Active Substance: IOHEXOL
     Dosage: OTHER STRENGTH : 240MG IODINE/ML;?

REACTIONS (4)
  - Rash [None]
  - Skin exfoliation [None]
  - Skin exfoliation [None]
  - Circumstance or information capable of leading to medication error [None]
